FAERS Safety Report 9233321 (Version 2)
Quarter: 2013Q2

REPORT INFORMATION
  Report Type: Spontaneous
  Country: JP (occurrence: JP)
  Receive Date: 20130416
  Receipt Date: 20130503
  Transmission Date: 20140414
  Serious: Yes (Hospitalization)
  Sender: FDA-Public Use
  Company Number: JP-ELI_LILLY_AND_COMPANY-JP201210007664

PATIENT
  Age: 65 Year
  Sex: Female

DRUGS (2)
  1. FORTEO [Suspect]
     Dosage: UNK
     Route: 058
     Dates: start: 20120914
  2. FORTEO [Suspect]
     Dosage: UNK
     Route: 058
     Dates: end: 201304

REACTIONS (4)
  - Renal failure [Unknown]
  - Medication error [Unknown]
  - Nasopharyngitis [Unknown]
  - Pneumonia [Unknown]
